FAERS Safety Report 9804485 (Version 1)
Quarter: 2014Q1

REPORT INFORMATION
  Report Type: Spontaneous
  Country: US (occurrence: US)
  Receive Date: 20140108
  Receipt Date: 20140108
  Transmission Date: 20141002
  Serious: Yes (Death)
  Sender: FDA-Public Use
  Company Number: US-GLAXOSMITHKLINE-A1055177A

PATIENT
  Age: 79 Year
  Sex: Male

DRUGS (11)
  1. VOTRIENT [Suspect]
     Indication: PRODUCT USED FOR UNKNOWN INDICATION
     Dosage: 800MG PER DAY
     Route: 048
     Dates: start: 20131101, end: 20131216
  2. METOPROLOL [Concomitant]
  3. METFORMIN [Concomitant]
  4. LANTUS [Concomitant]
  5. LISINOPRIL [Concomitant]
  6. IRON [Concomitant]
  7. SYNTHROID [Concomitant]
  8. WARFARIN [Concomitant]
  9. ZOFRAN [Concomitant]
  10. OMEPRAZOLE [Concomitant]
  11. UROXATRAL [Concomitant]

REACTIONS (1)
  - Death [Fatal]
